FAERS Safety Report 4317392-4 (Version None)
Quarter: 2004Q1

REPORT INFORMATION
  Report Type: 
  Country: None (occurrence: None)
  Receive Date: 20040312
  Receipt Date: 20040225
  Transmission Date: 20041129
  Serious: Yes (Death, Hospitalization)
  Sender: FDA-Public Use
  Company Number: 2004197793JP

PATIENT
  Age: 51 Year
  Sex: Female

DRUGS (15)
  1. CAMPTOSAR [Suspect]
     Indication: COLORECTAL CANCER METASTATIC
     Dosage: SEE IMAGE
     Route: 041
     Dates: start: 20030815, end: 20030815
  2. CAMPTOSAR [Suspect]
     Indication: COLORECTAL CANCER METASTATIC
     Dosage: SEE IMAGE
     Route: 041
     Dates: start: 20030826, end: 20031001
  3. CAMPTOSAR [Suspect]
     Indication: COLORECTAL CANCER METASTATIC
     Dosage: SEE IMAGE
     Route: 041
     Dates: start: 20030423
  4. PREDNISOLONE [Suspect]
     Indication: COLORECTAL CANCER METASTATIC
     Dosage: 40 MG, IV DRIP
     Route: 041
  5. MORPHINE [Suspect]
     Dosage: SEE IMAGE
     Route: 041
     Dates: start: 20020305, end: 20031018
  6. MORPHINE [Suspect]
     Dosage: SEE IMAGE
     Route: 041
     Dates: start: 20031019, end: 20031029
  7. MORPHINE [Suspect]
     Dosage: SEE IMAGE
     Route: 041
     Dates: start: 20031030, end: 20031101
  8. MORPHINE [Suspect]
     Dosage: SEE IMAGE
     Route: 041
     Dates: start: 20031102, end: 20031103
  9. FERRUM [Concomitant]
  10. GASTER [Concomitant]
  11. SELBEX (TEPRENONE) [Concomitant]
  12. PANTOL [Concomitant]
  13. HYOSCINE HBR HYT [Concomitant]
  14. FLUCALIQ N.3 [Concomitant]
  15. FENTANYL [Concomitant]

REACTIONS (6)
  - COLORECTAL CANCER [None]
  - DEPERSONALISATION [None]
  - DIPLOPIA [None]
  - EYE MOVEMENT DISORDER [None]
  - GENERAL PHYSICAL HEALTH DETERIORATION [None]
  - MALIGNANT NEOPLASM PROGRESSION [None]
